FAERS Safety Report 5375887-9 (Version None)
Quarter: 2007Q3

REPORT INFORMATION
  Report Type: 
  Country: None (occurrence: None)
  Receive Date: 20070702
  Receipt Date: 20070627
  Transmission Date: 20080115
  Serious: Yes (Hospitalization)
  Sender: FDA-Public Use
  Company Number: DEWYE714616AUG06

PATIENT
  Sex: Male
  Weight: 81.7 kg

DRUGS (10)
  1. RAPAMUNE [Suspect]
     Indication: PROPHYLAXIS AGAINST TRANSPLANT REJECTION
     Dosage: 5 MG
     Route: 048
     Dates: start: 20060511, end: 20060701
  2. RAPAMUNE [Suspect]
     Dosage: 3 MG
     Dates: start: 20060701
  3. SULFAMETHOXAZOLE AND TRIMETHOPRIM [Concomitant]
     Dosage: 480 MG
     Route: 048
  4. BELOC ZOK [Concomitant]
  5. SIMVASTATIN [Concomitant]
     Dosage: 40 MG
  6. LERCANIDIPINE [Concomitant]
     Dosage: 10 MG
  7. ATACAND [Concomitant]
  8. EZETROL [Concomitant]
     Dosage: 10 MG
  9. MYCOPHENOLATE MOFETIL [Suspect]
     Indication: PROPHYLAXIS AGAINST TRANSPLANT REJECTION
     Dosage: 1500 MG
     Route: 048
     Dates: start: 20060422
  10. RAMIPRIL [Concomitant]
     Dosage: 10 MG

REACTIONS (1)
  - COMPLICATIONS OF TRANSPLANTED KIDNEY [None]
